FAERS Safety Report 22056106 (Version 2)
Quarter: 2023Q2

REPORT INFORMATION
  Report Type: Spontaneous
  Country: US (occurrence: US)
  Receive Date: 20230302
  Receipt Date: 20230508
  Transmission Date: 20230721
  Serious: Yes (Hospitalization)
  Sender: FDA-Public Use
  Company Number: US-LUNDBECK-DKLU3058955

PATIENT
  Age: 9 Month
  Sex: Female

DRUGS (3)
  1. SABRIL [Suspect]
     Active Substance: VIGABATRIN
     Indication: Epilepsy
     Route: 048
  2. SABRIL [Suspect]
     Active Substance: VIGABATRIN
     Indication: Infantile spasms
  3. SABRIL [Suspect]
     Active Substance: VIGABATRIN
     Indication: Multiple congenital abnormalities

REACTIONS (1)
  - Oxygen saturation decreased [Not Recovered/Not Resolved]
